FAERS Safety Report 6935803-2 (Version None)
Quarter: 2010Q3

REPORT INFORMATION
  Report Type: 
  Country: None (occurrence: None)
  Receive Date: 20100823
  Receipt Date: 20100809
  Transmission Date: 20110219
  Serious: Yes (Congenital Anomaly, Other)
  Sender: FDA-Public Use
  Company Number: US-ELI_LILLY_AND_COMPANY-US201008004286

PATIENT

DRUGS (4)
  1. CYMBALTA [Suspect]
     Dosage: 60 MG, UNK
     Route: 064
  2. NEURONTIN [Concomitant]
     Route: 064
  3. SYNTHROID [Concomitant]
     Route: 064
  4. CORTISONE ACETATE [Concomitant]
     Route: 064

REACTIONS (2)
  - DRUG EXPOSURE DURING PREGNANCY [None]
  - TALIPES [None]
